FAERS Safety Report 21220960 (Version 1)
Quarter: 2022Q3

REPORT INFORMATION
  Report Type: Report from Study
  Country: US (occurrence: US)
  Receive Date: 20220817
  Receipt Date: 20220817
  Transmission Date: 20221027
  Serious: Yes (Other)
  Sender: FDA-Public Use
  Company Number: US-KADMON-US-KAD-22-00731

PATIENT
  Sex: Male

DRUGS (2)
  1. BELUMOSUDIL [Suspect]
     Active Substance: BELUMOSUDIL
     Indication: Graft versus host disease
     Dosage: 200 MILLIGRAM, QD
     Route: 065
     Dates: start: 20220118, end: 20220729
  2. CRESEMBA [Concomitant]
     Active Substance: ISAVUCONAZONIUM SULFATE
     Indication: Product used for unknown indication
     Dosage: UNK

REACTIONS (4)
  - Thrombosis [Unknown]
  - Fluid retention [Unknown]
  - Blood test abnormal [Unknown]
  - Swelling [Unknown]
